FAERS Safety Report 18380638 (Version 1)
Quarter: 2020Q4

REPORT INFORMATION
  Report Type: Report from Study
  Country: None (occurrence: US)
  Receive Date: 20201013
  Receipt Date: 20201013
  Transmission Date: 20210114
  Serious: Yes (Hospitalization, Other)
  Sender: FDA-Public Use
  Company Number: US-ABBVIE-20K-163-3300195-00

PATIENT
  Sex: Female

DRUGS (2)
  1. HUMIRA [Suspect]
     Active Substance: ADALIMUMAB
     Dosage: START DATE: ABOUT 10-12 YEARS AGO
     Route: 058
  2. HUMIRA [Suspect]
     Active Substance: ADALIMUMAB
     Indication: ANKYLOSING SPONDYLITIS
     Dosage: START DATE: MORE THAN 10 TO 12 YEARS?END DATE: ABOUT 10-12 YEARS AGO
     Route: 058

REACTIONS (10)
  - Intervertebral disc protrusion [Recovering/Resolving]
  - Neck surgery [Recovered/Resolved]
  - Spinal operation [Recovered/Resolved]
  - Type 2 diabetes mellitus [Recovering/Resolving]
  - Spinal operation [Recovering/Resolving]
  - Mobility decreased [Recovering/Resolving]
  - Hypothyroidism [Recovering/Resolving]
  - Back pain [Recovering/Resolving]
  - Blood cholesterol increased [Recovering/Resolving]
  - Hypertension [Recovering/Resolving]

NARRATIVE: CASE EVENT DATE: 2008
